FAERS Safety Report 6310394-8 (Version None)
Quarter: 2009Q3

REPORT INFORMATION
  Report Type: 
  Country: None (occurrence: None)
  Receive Date: 20090811
  Receipt Date: 20090728
  Transmission Date: 20100115
  Serious: Yes (Hospitalization)
  Sender: FDA-Public Use
  Company Number: ADE2009-0775

PATIENT
  Age: 6 Year
  Sex: Female

DRUGS (1)
  1. GLYBURIDE [Suspect]

REACTIONS (11)
  - ACCIDENTAL DRUG INTAKE BY CHILD [None]
  - AGITATION [None]
  - BLOOD GLUCOSE DECREASED [None]
  - CRYING [None]
  - EYE MOVEMENT DISORDER [None]
  - HEADACHE [None]
  - HEART RATE INCREASED [None]
  - LETHARGY [None]
  - MOBILITY DECREASED [None]
  - MUSCULOSKELETAL DISORDER [None]
  - SPEECH DISORDER [None]
